FAERS Safety Report 11099288 (Version 3)
Quarter: 2015Q2

REPORT INFORMATION
  Report Type: Spontaneous
  Country: BR (occurrence: BR)
  Receive Date: 20150508
  Receipt Date: 20150609
  Transmission Date: 20150821
  Serious: Yes (Hospitalization, Other)
  Sender: FDA-Public Use
  Company Number: BR-ASTRAZENECA-2015SE41913

PATIENT
  Age: 930 Month
  Sex: Female

DRUGS (1)
  1. SYMBICORT [Suspect]
     Active Substance: BUDESONIDE\FORMOTEROL FUMARATE DIHYDRATE
     Indication: ASTHMA
     Dosage: 160/4.5MCG; TWO TIMES A DAY, EXTRA DOSE IN CASE OF CRISIS
     Route: 055
     Dates: start: 2010, end: 201504

REACTIONS (6)
  - Cholelithiasis [Recovered/Resolved]
  - Sinusitis [Not Recovered/Not Resolved]
  - Asthmatic crisis [Recovered/Resolved]
  - Memory impairment [Unknown]
  - Pain [Recovered/Resolved]
  - Intentional product misuse [Recovered/Resolved]

NARRATIVE: CASE EVENT DATE: 201501
